FAERS Safety Report 23219391 (Version 3)
Quarter: 2023Q4

REPORT INFORMATION
  Report Type: Spontaneous
  Country: US (occurrence: US)
  Receive Date: 20231122
  Receipt Date: 20231230
  Transmission Date: 20240110
  Serious: No
  Sender: FDA-Public Use
  Company Number: US-ABBVIE-5507583

PATIENT
  Age: 73 Year
  Sex: Female
  Weight: 77 kg

DRUGS (4)
  1. RESTASIS [Suspect]
     Active Substance: CYCLOSPORINE
     Indication: Dry eye
     Dosage: ONE DROP IN EACH EYE?FORM STRENGTH: 0.05 PERCENT?START DATE TEXT: 3 TO 4 MONTHS OR SO IN --2023
     Route: 047
     Dates: end: 20231114
  2. COENZYME Q10 [Concomitant]
     Active Substance: DIETARY SUPPLEMENT\UBIDECARENONE
     Indication: Product used for unknown indication
  3. GLUCOSAMINE [Concomitant]
     Active Substance: GLUCOSAMINE
     Indication: Product used for unknown indication
  4. SYNTHROID [Concomitant]
     Active Substance: LEVOTHYROXINE SODIUM
     Indication: Hypothyroidism

REACTIONS (5)
  - Eye swelling [Recovered/Resolved]
  - Skin exfoliation [Recovered/Resolved]
  - Pruritus [Unknown]
  - Rash pruritic [Recovered/Resolved]
  - Product quality issue [Not Recovered/Not Resolved]

NARRATIVE: CASE EVENT DATE: 20231001
